FAERS Safety Report 5620641-3 (Version None)
Quarter: 2008Q1

REPORT INFORMATION
  Report Type: 
  Country: None (occurrence: None)
  Receive Date: 20080208
  Receipt Date: 20080131
  Transmission Date: 20080703
  Serious: Yes (Death, Hospitalization)
  Sender: FDA-Public Use
  Company Number: US-GILEAD-2008-0015050

PATIENT
  Sex: Female

DRUGS (4)
  1. LETAIRIS [Suspect]
     Indication: PULMONARY HYPERTENSION
     Route: 048
     Dates: start: 20070901, end: 20080117
  2. LEVOTHYROXINE SODIUM [Concomitant]
     Route: 048
     Dates: end: 20080118
  3. RANITIDINE [Concomitant]
     Route: 048
     Dates: end: 20080117
  4. NEXIUM [Concomitant]
     Route: 048
     Dates: end: 20080117

REACTIONS (1)
  - PNEUMOCOCCAL SEPSIS [None]
